FAERS Safety Report 5013027-6 (Version None)
Quarter: 2006Q2

REPORT INFORMATION
  Report Type: 
  Country: None (occurrence: None)
  Receive Date: 20060530
  Receipt Date: 20060202
  Transmission Date: 20061013
  Serious: No
  Sender: FDA-Public Use
  Company Number: US-GLAXOSMITHKLINE-A0592159A

PATIENT
  Age: 47 Year
  Sex: Male

DRUGS (2)
  1. WELLBUTRIN XL [Suspect]
     Indication: DEPRESSION
     Dosage: 300MG PER DAY
     Route: 048
     Dates: start: 20050401
  2. TYLENOL (GELTAB) [Concomitant]

REACTIONS (6)
  - ANTISOCIAL BEHAVIOUR [None]
  - DEPRESSION [None]
  - DISSOCIATION [None]
  - DISTURBANCE IN ATTENTION [None]
  - OBSESSIVE THOUGHTS [None]
  - PERSONALITY CHANGE [None]
